FAERS Safety Report 15606209 (Version 1)
Quarter: 2018Q4

REPORT INFORMATION
  Report Type: Spontaneous
  Country: US (occurrence: US)
  Receive Date: 20181106
  Receipt Date: 20181106
  Transmission Date: 20190205
  Serious: Yes (Life-Threatening, Hospitalization)
  Sender: FDA-Public Use
  Company Number: None

PATIENT
  Age: 68 Year
  Sex: Male
  Weight: 96.16 kg

DRUGS (3)
  1. AMIODARONE [Suspect]
     Active Substance: AMIODARONE
     Indication: ATRIAL FIBRILLATION
     Route: 048
     Dates: start: 20030101, end: 20180508
  2. AMIODARONE [Suspect]
     Active Substance: AMIODARONE
     Indication: CARDIAC FAILURE CONGESTIVE
  3. PREDNISONE. [Suspect]
     Active Substance: PREDNISONE
     Indication: HYPERTHYROIDISM
     Dates: start: 20180516

REACTIONS (5)
  - Wheezing [None]
  - Cardiac failure [None]
  - Cardiomyopathy [None]
  - Cough [None]
  - Dyspnoea [None]

NARRATIVE: CASE EVENT DATE: 20180616
